FAERS Safety Report 5848445-7 (Version None)
Quarter: 2008Q3

REPORT INFORMATION
  Report Type: 
  Country: None (occurrence: None)
  Receive Date: 20080815
  Receipt Date: 20080815
  Transmission Date: 20090109
  Serious: Yes (Life-Threatening)
  Sender: FDA-Public Use
  Company Number: None

PATIENT
  Sex: Female
  Weight: 62.1428 kg

DRUGS (2)
  1. NEULASTA [Suspect]
     Indication: NEUTROPENIA
     Dosage: 6MG  EACH CYCLE OF CHEM  SQ
     Route: 058
     Dates: start: 20080805, end: 20080805
  2. NEULASTA [Suspect]
     Indication: PROPHYLAXIS
     Dosage: 6MG  EACH CYCLE OF CHEM  SQ
     Route: 058
     Dates: start: 20080805, end: 20080805

REACTIONS (4)
  - HAEMOGLOBIN DECREASED [None]
  - HYPOTENSION [None]
  - PERITONEAL HAEMORRHAGE [None]
  - SPLENIC RUPTURE [None]
